FAERS Safety Report 7878081-2 (Version None)
Quarter: 2011Q4

REPORT INFORMATION
  Report Type: 
  Country: None (occurrence: None)
  Receive Date: 20111101
  Receipt Date: 20111021
  Transmission Date: 20120403
  Serious: No
  Sender: FDA-Public Use
  Company Number: US-BIOGENIDEC-2010BI034869

PATIENT
  Age: 54 Year
  Sex: Female

DRUGS (3)
  1. AVONEX [Concomitant]
     Indication: MULTIPLE SCLEROSIS
     Route: 030
  2. TYSABRI [Suspect]
     Indication: MULTIPLE SCLEROSIS
     Route: 042
     Dates: start: 20100409, end: 20110401
  3. TYSABRI [Suspect]
     Route: 042
     Dates: start: 20110701

REACTIONS (7)
  - HEADACHE [None]
  - SKIN ODOUR ABNORMAL [None]
  - MULTIPLE SCLEROSIS [None]
  - MYALGIA [None]
  - WEIGHT INCREASED [None]
  - BRONCHITIS [None]
  - PAIN IN EXTREMITY [None]
